FAERS Safety Report 11849068 (Version 1)
Quarter: 2015Q4

REPORT INFORMATION
  Report Type: Spontaneous
  Country: CA (occurrence: CA)
  Receive Date: 20151218
  Receipt Date: 20151218
  Transmission Date: 20160305
  Serious: Yes (Hospitalization)
  Sender: FDA-Public Use
  Company Number: CA-TEVA-619057ACC

PATIENT
  Age: 61 Year
  Sex: Female
  Weight: 100 kg

DRUGS (11)
  1. MEDROXYPROGESTERONE ACETATE. [Suspect]
     Active Substance: MEDROXYPROGESTERONE ACETATE
     Indication: PREVENTION OF ENDOMETRIAL HYPERPLASIA
     Dosage: 2.5 MILLIGRAM DAILY;
     Route: 048
  2. NOVOLIN 30/70 INJ SUS [Concomitant]
     Route: 058
  3. DESLORATADINE. [Concomitant]
     Active Substance: DESLORATADINE
  4. ATORVASTATIN CALCIUM. [Concomitant]
     Active Substance: ATORVASTATIN CALCIUM
  5. CITALOPRAM [Concomitant]
     Active Substance: CITALOPRAM HYDROBROMIDE
  6. LANSOPRAZOLE. [Concomitant]
     Active Substance: LANSOPRAZOLE
  7. CONJUGATED ESTROGENS [Suspect]
     Active Substance: ESTROGENS, CONJUGATED
     Indication: HOT FLUSH
     Dosage: .625 MILLIGRAM DAILY;
     Route: 048
  8. INDAPAMIDE. [Concomitant]
     Active Substance: INDAPAMIDE
  9. NASONEX [Concomitant]
     Active Substance: MOMETASONE FUROATE
  10. NOVOLIN [Concomitant]
     Active Substance: INSULIN HUMAN
     Route: 030
  11. LOSARTAN. [Concomitant]
     Active Substance: LOSARTAN

REACTIONS (3)
  - Pulmonary embolism [Recovered/Resolved]
  - Pneumonia [Recovered/Resolved]
  - Thrombophlebitis superficial [Recovered/Resolved]
